FAERS Safety Report 13077001 (Version 1)
Quarter: 2016Q4

REPORT INFORMATION
  Report Type: Spontaneous
  Country: KR (occurrence: KR)
  Receive Date: 20161230
  Receipt Date: 20161230
  Transmission Date: 20170207
  Serious: Yes (Other)
  Sender: FDA-Public Use
  Company Number: KR-BAUSCH-BL-2016-032996

PATIENT
  Age: 15 Year
  Sex: Male

DRUGS (9)
  1. AMPHOTERICIN B. [Suspect]
     Active Substance: AMPHOTERICIN B
     Indication: BRONCHOPULMONARY ASPERGILLOSIS
     Route: 065
  2. VORICONAZOLE. [Suspect]
     Active Substance: VORICONAZOLE
     Indication: BRONCHOPULMONARY ASPERGILLOSIS
     Route: 048
  3. AMPHOTERICIN B. [Suspect]
     Active Substance: AMPHOTERICIN B
     Indication: PNEUMONIA FUNGAL
  4. IMMUNOGLOBULINS [Concomitant]
     Active Substance: HUMAN IMMUNOGLOBULIN G
     Route: 042
  5. MEROPENEM. [Suspect]
     Active Substance: MEROPENEM
     Indication: FEBRILE NEUTROPENIA
     Route: 065
  6. TEICOPLANIN [Suspect]
     Active Substance: TEICOPLANIN
     Indication: FEBRILE NEUTROPENIA
     Route: 065
  7. VORICONAZOLE. [Suspect]
     Active Substance: VORICONAZOLE
     Route: 048
  8. IMMUNOGLOBULINS [Concomitant]
     Active Substance: HUMAN IMMUNOGLOBULIN G
     Indication: ADENOVIRUS INFECTION
     Dosage: 1G/KG
     Route: 042
  9. RIBAVIRIN. [Suspect]
     Active Substance: RIBAVIRIN
     Indication: ADENOVIRUS INFECTION
     Route: 048

REACTIONS (1)
  - Acute kidney injury [Recovering/Resolving]
